FAERS Safety Report 5779414-3 (Version None)
Quarter: 2008Q2

REPORT INFORMATION
  Report Type: 
  Country: None (occurrence: None)
  Receive Date: 20080619
  Receipt Date: 20070507
  Transmission Date: 20081010
  Serious: No
  Sender: FDA-Public Use
  Company Number: US-ASTRAZENECA-2007UW09635

PATIENT
  Age: 75 Year
  Sex: Female
  Weight: 44.5 kg

DRUGS (5)
  1. ATACAND [Suspect]
     Route: 048
     Dates: start: 20070427
  2. TOPROL-XL [Concomitant]
  3. THYROID REPLACEMENT [Concomitant]
  4. ASPIRIN [Concomitant]
  5. ZETIA [Concomitant]

REACTIONS (1)
  - BACK PAIN [None]
